FAERS Safety Report 20763544 (Version 2)
Quarter: 2022Q2

REPORT INFORMATION
  Report Type: Spontaneous
  Country: JP (occurrence: JP)
  Receive Date: 20220428
  Receipt Date: 20220526
  Transmission Date: 20220721
  Serious: Yes (Hospitalization)
  Sender: FDA-Public Use
  Company Number: JP-NOVARTISPH-NVSJ2022JP089180

PATIENT
  Age: 25 Year
  Sex: Female

DRUGS (5)
  1. XYLOCAINE [Suspect]
     Active Substance: LIDOCAINE HYDROCHLORIDE
     Indication: Anaesthesia procedure
     Dosage: 0.5% 10 ML VIAL
     Route: 065
     Dates: start: 201910, end: 201910
  2. ANAPEINE [Suspect]
     Active Substance: ROPIVACAINE HYDROCHLORIDE
     Indication: Anaesthesia procedure
     Dosage: 0.2% 100 ML 1 BAG
     Route: 065
     Dates: start: 201910, end: 201910
  3. ANAPEINE [Suspect]
     Active Substance: ROPIVACAINE HYDROCHLORIDE
     Dosage: 0.75% 10 ML 1 AMPULE
     Route: 065
     Dates: start: 201910, end: 201910
  4. BUPIVACAINE HYDROCHLORIDE [Suspect]
     Active Substance: BUPIVACAINE HYDROCHLORIDE
     Indication: Anaesthesia procedure
     Dosage: 0.5% 4 ML 1 AMPULE, 3CC/DAY
     Route: 037
     Dates: start: 20191030, end: 20191030
  5. CARBOCAINE [Suspect]
     Active Substance: MEPIVACAINE HYDROCHLORIDE
     Indication: Product used for unknown indication
     Route: 065

REACTIONS (5)
  - Cauda equina syndrome [Recovered/Resolved with Sequelae]
  - Pain in extremity [Recovered/Resolved]
  - Hypoaesthesia [Not Recovered/Not Resolved]
  - Allodynia [Recovered/Resolved]
  - Dysuria [Not Recovered/Not Resolved]

NARRATIVE: CASE EVENT DATE: 20191030
